FAERS Safety Report 15128572 (Version 1)
Quarter: 2018Q4

REPORT INFORMATION
  Report Type: Spontaneous
  Country: US (occurrence: US)
  Receive Date: 20180711
  Receipt Date: 20180711
  Transmission Date: 20190204
  Serious: No
  Sender: FDA-Public Use
  Company Number: US-BAUSCH-BL-2017-025195

PATIENT
  Sex: Female

DRUGS (1)
  1. MINOCIN KIT [Suspect]
     Active Substance: MINOCYCLINE HYDROCHLORIDE
     Indication: INFECTION
     Dosage: STARTED ABOUT 7 WEEKS AGO AND TOOK THE PRODUCT FOR ABOUT 3 WEEKS
     Route: 048
     Dates: start: 201707, end: 201707

REACTIONS (3)
  - Arthralgia [Recovered/Resolved]
  - Myalgia [Recovered/Resolved]
  - Pyrexia [Recovered/Resolved]

NARRATIVE: CASE EVENT DATE: 201707
